FAERS Safety Report 8153539-X (Version None)
Quarter: 2012Q1

REPORT INFORMATION
  Report Type: 
  Country: None (occurrence: None)
  Receive Date: 20120103
  Receipt Date: 20111029
  Transmission Date: 20120608
  Serious: No
  Sender: FDA-Public Use
  Company Number: AE-2011-002849

PATIENT
  Age: 45 Year
  Sex: Female
  Weight: 86.1834 kg

DRUGS (6)
  1. RIBAVIRIN [Concomitant]
  2. VITAMIN B12 [Concomitant]
  3. PRILOSEC [Concomitant]
  4. VITAMIN D [Concomitant]
  5. PEGASYS [Concomitant]
  6. INCIVEK [Suspect]
     Dosage: 2250 MG (750 MG,3 IN 1 D),ORAL
     Route: 048
     Dates: start: 20110818

REACTIONS (4)
  - RASH PRURITIC [None]
  - DECREASED APPETITE [None]
  - NAUSEA [None]
  - ABDOMINAL PAIN UPPER [None]
